FAERS Safety Report 21351470 (Version 1)
Quarter: 2022Q3

REPORT INFORMATION
  Report Type: Report from Study
  Country: JP (occurrence: None)
  Receive Date: 20220919
  Receipt Date: 20220919
  Transmission Date: 20221026
  Serious: Yes (Hospitalization)
  Sender: FDA-Public Use
  Company Number: JP-Merck Healthcare KGaA-9351157

PATIENT
  Age: 64 Year
  Sex: Female
  Weight: 38 kg

DRUGS (9)
  1. BAVENCIO [Suspect]
     Active Substance: AVELUMAB
     Indication: Renal cancer
     Route: 041
     Dates: start: 20210526, end: 20220705
  2. INLYTA [Suspect]
     Active Substance: AXITINIB
     Indication: Renal cancer
     Route: 048
     Dates: start: 20210526, end: 20220808
  3. PREDNISOLONE [Suspect]
     Active Substance: PREDNISOLONE
     Indication: Product used for unknown indication
     Dosage: 3 TABLETS X 2 (AFTER BREAKFAST AND DINNER)
     Route: 048
     Dates: start: 20211116, end: 20220812
  4. LEVOTHYROXINE SODIUM [Suspect]
     Active Substance: LEVOTHYROXINE SODIUM
     Indication: Product used for unknown indication
     Dosage: 2 TABLETS X 1 (AFTER BREAKFAST).
     Route: 048
     Dates: start: 20211130
  5. LEVOTHYROXINE SODIUM [Suspect]
     Active Substance: LEVOTHYROXINE SODIUM
     Dosage: 1 TABLET X 1 (AFTER BREAKFAST)
     Route: 048
     Dates: start: 20211130, end: 20220808
  6. MOSAPRIDE CITRATE DIHYDRATE [Concomitant]
     Active Substance: MOSAPRIDE CITRATE DIHYDRATE
     Indication: Product used for unknown indication
     Dosage: 3 TABLETS X 3 (AFTER EACH MEAL
     Route: 048
     Dates: start: 20211116
  7. POLAPREZINC [Concomitant]
     Active Substance: POLAPREZINC
     Indication: Product used for unknown indication
     Dosage: 2 TABLETS X 2 (AFTER BREAKFAST AND DINNER).
     Route: 048
     Dates: start: 20211122
  8. AMLODIPINE BESYLATE [Concomitant]
     Active Substance: AMLODIPINE BESYLATE
     Indication: Product used for unknown indication
     Dosage: 1 TABLET X 1 (AFTER BREAKFAST).
     Route: 048
     Dates: start: 20210609, end: 20220808
  9. TRICHLORMETHIAZIDE [Concomitant]
     Active Substance: TRICHLORMETHIAZIDE
     Indication: Product used for unknown indication
     Dosage: 1 TABLET X 1 (AFTER BREAKFAST)
     Route: 048
     Dates: start: 20220208, end: 20220808

REACTIONS (2)
  - Cardiomyopathy [Recovering/Resolving]
  - Adrenal insufficiency [Recovering/Resolving]

NARRATIVE: CASE EVENT DATE: 20220808
